FAERS Safety Report 8084727-9 (Version None)
Quarter: 2012Q1

REPORT INFORMATION
  Report Type: 
  Country: None (occurrence: None)
  Receive Date: 20120128
  Receipt Date: 20110316
  Transmission Date: 20120608
  Serious: No
  Sender: FDA-Public Use
  Company Number: US-ABBOTT-11P-163-0712484-00

PATIENT
  Sex: Female
  Weight: 81.72 kg

DRUGS (20)
  1. XALATAN [Concomitant]
     Indication: GLAUCOMA
  2. XALATAN [Concomitant]
     Indication: CATARACT
  3. HUMIRA [Suspect]
     Route: 058
  4. PREDNISONE TAB [Concomitant]
     Indication: PROPHYLAXIS
     Route: 048
  5. ZOLPIDEM [Concomitant]
     Indication: PRODUCT USED FOR UNKNOWN INDICATION
  6. HUMIRA [Suspect]
     Indication: JUVENILE ARTHRITIS
     Route: 058
  7. ADVAIR DISKUS 100/50 [Concomitant]
     Indication: PRODUCT USED FOR UNKNOWN INDICATION
  8. METHOTREXATE [Concomitant]
     Indication: PRODUCT USED FOR UNKNOWN INDICATION
     Route: 048
  9. FOLIC ACID [Concomitant]
     Indication: PRODUCT USED FOR UNKNOWN INDICATION
  10. MORPHINE SULFATE [Concomitant]
     Indication: PAIN MANAGEMENT
     Dates: start: 20110301
  11. SIMVASTATIN [Concomitant]
     Indication: BLOOD CHOLESTEROL INCREASED
  12. OXYCODONE HCL AND ACETAMINOPHEN [Concomitant]
     Indication: PAIN MANAGEMENT
     Dates: end: 20110301
  13. HUMIRA [Suspect]
     Dosage: TOOK A FEW INJECTIONS, AND THEN WENT OFF MEDICATION AGAIN FOR INFECTION.
     Route: 058
  14. OMEPRAZOLE [Concomitant]
     Indication: GASTROOESOPHAGEAL REFLUX DISEASE
  15. CALCIUM [Concomitant]
     Indication: PRODUCT USED FOR UNKNOWN INDICATION
     Route: 048
  16. PREDNISONE TAB [Concomitant]
     Indication: JUVENILE ARTHRITIS
     Dosage: STARTED AT 60MG, AND TAPERED DOWN TO 12 MG RECENTLY, BUT CANNOT TAPER BELOW THAT.
     Route: 048
     Dates: start: 20100501
  17. CITALOPRAM [Concomitant]
     Indication: DEPRESSION
  18. CALCIUM [Concomitant]
     Route: 048
  19. CLONAZEPAM [Concomitant]
     Indication: ANXIETY
  20. HUMIRA [Suspect]
     Indication: JUVENILE ARTHRITIS
     Dosage: SAMPLES
     Route: 058
     Dates: start: 20110101

REACTIONS (3)
  - INFECTION [None]
  - HERPES ZOSTER [None]
  - CELLULITIS [None]
